FAERS Safety Report 5073279-3 (Version None)
Quarter: 2006Q3

REPORT INFORMATION
  Report Type: 
  Country: None (occurrence: None)
  Receive Date: 20060802
  Receipt Date: 20060721
  Transmission Date: 20061208
  Serious: Yes (Other)
  Sender: FDA-Public Use
  Company Number: 2006084158

PATIENT
  Age: 70 Year
  Sex: Male
  Weight: 80.7403 kg

DRUGS (8)
  1. NEURONTIN [Suspect]
     Indication: TREMOR
     Dosage: 900 MG (300 MG, 3 IN 1 D), ORAL
     Route: 048
     Dates: start: 20060717
  2. ZOLOFT [Suspect]
     Indication: DEPRESSION
     Dosage: 25 MG (25 MG, 1 IN 1 D), ORAL
     Route: 048
     Dates: start: 20020101
  3. LOTENSIN [Suspect]
     Indication: ATRIAL FIBRILLATION
     Dosage: 10 MG (10 MG, 1 IN 1 D)
  4. SERZONE [Suspect]
     Indication: DRUG USE FOR UNKNOWN INDICATION
  5. ANTIDEPRESSANTS (ANTIDEPRESSANTS) [Suspect]
     Indication: DRUG USE FOR UNKNOWN INDICATION
  6. SSRI (SSRI) [Suspect]
     Indication: DRUG USE FOR UNKNOWN INDICATION
  7. MELATONIN (MELATONIN) [Concomitant]
  8. ASPIRIN [Concomitant]

REACTIONS (9)
  - ANXIETY [None]
  - ATRIAL FIBRILLATION [None]
  - CEREBRAL DISORDER [None]
  - DRUG INEFFECTIVE [None]
  - GASTROOESOPHAGEAL REFLUX DISEASE [None]
  - INSOMNIA [None]
  - SELF-MEDICATION [None]
  - TREMOR [None]
  - UNEVALUABLE EVENT [None]
